FAERS Safety Report 17444816 (Version 2)
Quarter: 2021Q3

REPORT INFORMATION
  Report Type: Spontaneous
  Country: US (occurrence: US)
  Receive Date: 20200221
  Receipt Date: 20210708
  Transmission Date: 20211014
  Serious: Yes (Other)
  Sender: FDA-Public Use
  Company Number: US-TEVA-2020-US-1188315

PATIENT
  Sex: Female

DRUGS (1)
  1. VALSARTAN/HYDROCHLOROTHIAZIDE AUROBINDO [Suspect]
     Active Substance: HYDROCHLOROTHIAZIDE\VALSARTAN
     Indication: HYPERTENSION
     Dosage: 160?12.5 MG QD
     Route: 048
     Dates: start: 20150606, end: 201910

REACTIONS (1)
  - Lung neoplasm malignant [Unknown]
